FAERS Safety Report 4266996-6 (Version None)
Quarter: 2004Q1

REPORT INFORMATION
  Report Type: 
  Country: None (occurrence: None)
  Receive Date: 20040107
  Receipt Date: 20031230
  Transmission Date: 20041129
  Serious: Yes (Other)
  Sender: FDA-Public Use
  Company Number: US-JNJFOC-20031105256

PATIENT
  Sex: Male

DRUGS (1)
  1. TOPOMAX(TOPIRAMATE) [Suspect]
     Indication: DRUG USE FOR UNKNOWN INDICATION
     Dosage: 500 MG, 2 IN 1 DAY, ORAL
     Route: 048

REACTIONS (1)
  - CARCINOMA [None]
